FAERS Safety Report 20079550 (Version 1)
Quarter: 2021Q4

REPORT INFORMATION
  Report Type: Report from Study
  Country: FR (occurrence: FR)
  Receive Date: 20211117
  Receipt Date: 20211117
  Transmission Date: 20220303
  Serious: Yes (Other)
  Sender: FDA-Public Use
  Company Number: FR-KOREA IPSEN Pharma-2021-28485

PATIENT

DRUGS (1)
  1. BOTULINUM TOXIN TYPE A [Suspect]
     Active Substance: BOTULINUM TOXIN TYPE A
     Indication: Muscle spasticity
     Dosage: NOT REPORTED
     Route: 030

REACTIONS (9)
  - Embolism arterial [Unknown]
  - Embolism venous [Unknown]
  - Compartment syndrome [Unknown]
  - Ischaemic stroke [Unknown]
  - Cerebral haemorrhage [Unknown]
  - Haematoma [Unknown]
  - Peripheral ischaemia [Unknown]
  - Venous thrombosis [Unknown]
  - Adverse event [Unknown]
